FAERS Safety Report 6857922-1 (Version None)
Quarter: 2010Q3

REPORT INFORMATION
  Report Type: 
  Country: None (occurrence: None)
  Receive Date: 20100714
  Receipt Date: 20100707
  Transmission Date: 20110219
  Serious: Yes (Death)
  Sender: FDA-Public Use
  Company Number: 2010JP003926

PATIENT
  Age: 64 Year
  Sex: Male

DRUGS (7)
  1. PROGRAF [Suspect]
     Indication: RENAL TRANSPLANT
     Dosage: 4 MG
  2. MIZORBINE (MIZORBINE) [Concomitant]
  3. PREDNISOLONE [Concomitant]
  4. ANTIBIOTICS [Concomitant]
  5. PENTAMIDINE (PENTAMIDINE) [Concomitant]
  6. STEROID FORMULATION [Concomitant]
  7. THEOPHYLLINE [Concomitant]

REACTIONS (6)
  - CANDIDIASIS [None]
  - HYPERCAPNIA [None]
  - PNEUMOCYSTIS JIROVECI PNEUMONIA [None]
  - PSEUDOMONAS INFECTION [None]
  - RESPIRATORY FAILURE [None]
  - RESTRICTIVE PULMONARY DISEASE [None]
